FAERS Safety Report 16788419 (Version 1)
Quarter: 2019Q3

REPORT INFORMATION
  Report Type: Spontaneous
  Country: CZ (occurrence: CZ)
  Receive Date: 20190910
  Receipt Date: 20190910
  Transmission Date: 20191005
  Serious: Yes (Disabling, Other)
  Sender: FDA-Public Use
  Company Number: CZ-US-PROVELL PHARMACEUTICALS LLC-9114515

PATIENT
  Age: 73 Year
  Sex: Male

DRUGS (9)
  1. FINEX                              /00821801/ [Concomitant]
     Indication: BLADDER DISORDER
  2. KETILEPT [Concomitant]
     Active Substance: QUETIAPINE FUMARATE
     Indication: HEAD DISCOMFORT
  3. STACYL [Concomitant]
     Indication: ANTICOAGULANT THERAPY
  4. EGILOK [Concomitant]
     Active Substance: METOPROLOL TARTRATE
     Indication: BLOOD PRESSURE MEASUREMENT
  5. ALZIL [Concomitant]
     Indication: HEAD DISCOMFORT
  6. AKINETON [Concomitant]
     Active Substance: BIPERIDEN HYDROCHLORIDE
     Indication: HEAD DISCOMFORT
  7. EUTHYROX [Suspect]
     Active Substance: LEVOTHYROXINE SODIUM
     Indication: THYROID DISORDER
  8. URIZIA [Concomitant]
     Indication: BLADDER DISORDER
  9. ROSUMOP [Concomitant]
     Indication: BLOOD CHOLESTEROL

REACTIONS (6)
  - Bladder disorder [Unknown]
  - Hypokinesia [Unknown]
  - Cardiac disorder [Unknown]
  - Dementia Alzheimer^s type [Unknown]
  - Apathy [Unknown]
  - Somnolence [Unknown]
